FAERS Safety Report 9060568 (Version 2)
Quarter: 2013Q2

REPORT INFORMATION
  Report Type: Spontaneous
  Country: US (occurrence: US)
  Receive Date: 20130212
  Receipt Date: 20130527
  Transmission Date: 20140414
  Serious: No
  Sender: FDA-Public Use
  Company Number: US-009507513-1302USA001629

PATIENT
  Sex: Female

DRUGS (17)
  1. DULERA [Suspect]
     Indication: ASTHMA
     Dosage: TWO PUFFS IN THE MORNING AND TWO PUFFS AT NIGHT
     Route: 055
     Dates: start: 201208
  2. ADVAIR [Concomitant]
  3. ALLEGRA [Concomitant]
  4. CALCIUM (UNSPECIFIED) [Concomitant]
  5. CENTRUM (MINERALS (UNSPECIFIED) (+) VITAMINS (UNSPECIFIED)) [Concomitant]
  6. CYCLOCENZAPRIME [Concomitant]
  7. DIAZEPAM [Concomitant]
  8. GABAPENTIN [Concomitant]
  9. MONTELUKAST SODIUM [Concomitant]
  10. MORPHINE SULFATE [Concomitant]
  11. OXYGEN [Concomitant]
  12. PERPHEN-AMITRIOPE [Concomitant]
  13. PROAIR HFA (ALBUTEROL SULFATE) [Concomitant]
  14. SPIRONOLACTONE [Concomitant]
  15. VERAPAMIL [Concomitant]
  16. VITAMIN C [Concomitant]
  17. QNASL [Concomitant]

REACTIONS (4)
  - Dyspnoea [Not Recovered/Not Resolved]
  - Dysphonia [Not Recovered/Not Resolved]
  - Drug dose omission [Unknown]
  - Product dosage form issue [Unknown]
